FAERS Safety Report 8508869-6 (Version None)
Quarter: 2012Q3

REPORT INFORMATION
  Report Type: 
  Country: None (occurrence: None)
  Receive Date: 20120713
  Receipt Date: 20120710
  Transmission Date: 20120928
  Serious: Yes (Other)
  Sender: FDA-Public Use
  Company Number: US-PFIZER INC-2012166133

PATIENT
  Sex: Female

DRUGS (3)
  1. GLUCOTROL XL [Suspect]
     Dosage: UNK
  2. ACCUPRIL [Suspect]
     Dosage: UNK
  3. NORVASC [Suspect]
     Dosage: UNK

REACTIONS (3)
  - ACCIDENT AT HOME [None]
  - EYE SWELLING [None]
  - IMPAIRED DRIVING ABILITY [None]
